FAERS Safety Report 14589034 (Version 3)
Quarter: 2018Q1

REPORT INFORMATION
  Report Type: Spontaneous
  Country: US (occurrence: US)
  Receive Date: 20180301
  Receipt Date: 20180320
  Transmission Date: 20180509
  Serious: No
  Sender: FDA-Public Use
  Company Number: US-LUNDBECK-DKLU2044799

PATIENT
  Age: 80 Year
  Sex: Female
  Weight: 99 kg

DRUGS (2)
  1. NORTHERA [Suspect]
     Active Substance: DROXIDOPA
     Indication: ORTHOSTATIC HYPOTENSION
     Dosage: SCHEDULE C AND TITRATING
     Route: 065
     Dates: start: 20180214
  2. NORTHERA [Suspect]
     Active Substance: DROXIDOPA
     Dosage: TITRATE FOR 2 WEEKS
     Route: 065
     Dates: end: 20180226

REACTIONS (2)
  - Drug ineffective [Unknown]
  - Headache [Recovered/Resolved]

NARRATIVE: CASE EVENT DATE: 20180205
